FAERS Safety Report 5043960-0 (Version None)
Quarter: 2006Q2

REPORT INFORMATION
  Report Type: 
  Country: None (occurrence: None)
  Receive Date: 20060601
  Receipt Date: 20060404
  Transmission Date: 20061013
  Serious: No
  Sender: FDA-Public Use
  Company Number: US200604000726

PATIENT
  Age: 54 Year
  Sex: Female

DRUGS (1)
  1. CYMBALTA [Suspect]
     Indication: ANXIETY
     Dosage: 20 MG, DAILY (1/D)

REACTIONS (4)
  - ABDOMINAL DISCOMFORT [None]
  - FATIGUE [None]
  - OESOPHAGITIS [None]
  - TENSION [None]
